FAERS Safety Report 8964412 (Version 2)
Quarter: 2013Q1

REPORT INFORMATION
  Report Type: Report from Study
  Country: US (occurrence: US)
  Receive Date: 20121214
  Receipt Date: 20130102
  Transmission Date: 20140127
  Serious: Yes (Other)
  Sender: FDA-Public Use
  Company Number: US-ROCHE-1168656

PATIENT
  Sex: Male

DRUGS (2)
  1. NAPROXEN [Suspect]
     Indication: PROSTATE CANCER RECURRENT
     Route: 065
  2. CALCITRIOL [Suspect]
     Indication: PROSTATE CANCER RECURRENT
     Route: 048

REACTIONS (1)
  - Prostate cancer [Unknown]
